FAERS Safety Report 11993004 (Version 1)
Quarter: 2016Q1

REPORT INFORMATION
  Report Type: Spontaneous
  Country: US (occurrence: US)
  Receive Date: 20160203
  Receipt Date: 20160203
  Transmission Date: 20160526
  Serious: Yes (Death, Hospitalization)
  Sender: FDA-Public Use
  Company Number: US-STRIDES ARCOLAB LIMITED-2016SP000635

PATIENT

DRUGS (2)
  1. MYCOPHENOLATE MOFETIL. [Suspect]
     Active Substance: MYCOPHENOLATE MOFETIL
     Indication: IMMUNOSUPPRESSION
     Dosage: UNK
  2. TACROLIMUS. [Concomitant]
     Active Substance: TACROLIMUS
     Indication: IMMUNOSUPPRESSION
     Dosage: UNK

REACTIONS (10)
  - Abdominal tenderness [Unknown]
  - Diarrhoea [Unknown]
  - Purulent discharge [Unknown]
  - Abdominal pain [Unknown]
  - Enteritis [Fatal]
  - Incision site erythema [Unknown]
  - Abdominal rigidity [Unknown]
  - Nausea [Unknown]
  - Hypovolaemia [Unknown]
  - Vomiting [Unknown]
